FAERS Safety Report 11873137 (Version 1)
Quarter: 2015Q4

REPORT INFORMATION
  Report Type: Spontaneous
  Country: NL (occurrence: NL)
  Receive Date: 20151228
  Receipt Date: 20151228
  Transmission Date: 20160305
  Serious: Yes (Hospitalization)
  Sender: FDA-Public Use
  Company Number: NL-009507513-1512NLD011281

PATIENT
  Age: 60 Year
  Sex: Female

DRUGS (12)
  1. LEVOTHYROXINE SODIUM. [Concomitant]
     Active Substance: LEVOTHYROXINE SODIUM
     Dosage: ONCE PER DAY THREE UNIT(S)
     Route: 048
     Dates: start: 20061016
  2. INSULIN ASPART [Concomitant]
     Active Substance: INSULIN ASPART
     Dosage: EXTRA INFO: INJ
     Route: 058
     Dates: start: 20150220
  3. INSULIN HUMAN, ISOPHANE [Concomitant]
     Active Substance: INSULIN HUMAN
     Dosage: EXTRA INFO: INJ
     Route: 058
     Dates: start: 20150220
  4. LOSARTAN POTASSIUM. [Concomitant]
     Active Substance: LOSARTAN POTASSIUM
     Dosage: ONCE PER DAY ONE UNIT(S)
     Route: 048
     Dates: start: 20110822
  5. CRESTOR [Concomitant]
     Active Substance: ROSUVASTATIN CALCIUM
     Dosage: ONCE PER DAY ONE UNIT(S)
     Route: 048
     Dates: start: 20150402
  6. PAROXETINE [Concomitant]
     Active Substance: PAROXETINE\PAROXETINE HYDROCHLORIDE
     Dosage: ONCE PER DAY ONE UNIT(S)
     Route: 048
     Dates: start: 20110203
  7. OMEPRAZOLE. [Concomitant]
     Active Substance: OMEPRAZOLE
     Dosage: ONCE PER DAY ONE UNIT(S)
     Route: 048
     Dates: start: 20070109
  8. EZETROL [Suspect]
     Active Substance: EZETIMIBE
     Indication: HYPERCHOLESTEROLAEMIA
     Dosage: 1 KEER PER DAG 1 STUK(S)
     Route: 048
     Dates: start: 20151023, end: 20151204
  9. METOPROLOL SUCCINATE. [Concomitant]
     Active Substance: METOPROLOL SUCCINATE
     Dosage: ONCE PER DAY ONE UNIT(S)
     Route: 048
     Dates: start: 20091111
  10. LEVOTHYROXINE SODIUM. [Concomitant]
     Active Substance: LEVOTHYROXINE SODIUM
     Dosage: ONCE PER DAY ONE UNIT(S)
     Route: 048
     Dates: start: 20061016
  11. HYDROCHLOORTHIAZIDE [Concomitant]
     Active Substance: HYDROCHLOROTHIAZIDE
     Dosage: ONCE PER DAY ONE UNIT(S)
     Route: 048
     Dates: start: 20101118
  12. ASPIRIN. [Concomitant]
     Active Substance: ASPIRIN
     Dosage: ONCE PER DAY ONE UNIT(S)
     Route: 048
     Dates: start: 20141007

REACTIONS (3)
  - Arthralgia [Recovering/Resolving]
  - Arrhythmia [Recovering/Resolving]
  - Fluid retention [Recovering/Resolving]

NARRATIVE: CASE EVENT DATE: 20151101
